FAERS Safety Report 6519395-8 (Version None)
Quarter: 2009Q4

REPORT INFORMATION
  Report Type: 
  Country: None (occurrence: None)
  Receive Date: 20091228
  Receipt Date: 20091218
  Transmission Date: 20100525
  Serious: Yes (Disabling, Other)
  Sender: FDA-Public Use
  Company Number: US-MERCK-0910USA01884

PATIENT
  Age: 83 Year
  Sex: Female
  Weight: 70 kg

DRUGS (13)
  1. FOSAMAX [Suspect]
     Indication: OSTEOPOROSIS
     Route: 048
     Dates: start: 20020927, end: 20080601
  2. EFFEXOR XR [Concomitant]
     Route: 065
  3. PREVACID [Concomitant]
     Route: 065
  4. CELEBREX [Concomitant]
     Route: 065
  5. VESICARE [Concomitant]
     Route: 065
  6. MACRODANTIN [Concomitant]
     Route: 065
  7. COLACE [Concomitant]
     Route: 065
  8. ZYRTEC [Concomitant]
     Route: 065
  9. LORAZEPAM [Concomitant]
     Route: 065
  10. LORTAB [Concomitant]
     Route: 065
  11. LASIX [Concomitant]
     Route: 065
  12. AMBIEN [Concomitant]
     Route: 065
  13. LUNESTA [Concomitant]
     Route: 065

REACTIONS (22)
  - ABDOMINAL PAIN [None]
  - CHRONIC SINUSITIS [None]
  - DELUSION [None]
  - DEMENTIA [None]
  - DYSPHAGIA [None]
  - FATIGUE [None]
  - HALLUCINATION [None]
  - HYPERTENSION [None]
  - HYPERTONIC BLADDER [None]
  - INGROWING NAIL [None]
  - INSOMNIA [None]
  - INTESTINAL POLYP [None]
  - MACULAR DEGENERATION [None]
  - MUSCLE SPASMS [None]
  - NAUSEA [None]
  - ORAL HERPES [None]
  - OSTEONECROSIS [None]
  - PAIN IN EXTREMITY [None]
  - RENAL FAILURE CHRONIC [None]
  - TOOTH DISORDER [None]
  - TOOTH INFECTION [None]
  - VOMITING [None]
